FAERS Safety Report 11001482 (Version 1)
Quarter: 2015Q2

REPORT INFORMATION
  Report Type: Spontaneous
  Country: US (occurrence: US)
  Receive Date: 20150408
  Receipt Date: 20150408
  Transmission Date: 20150821
  Serious: Yes (Hospitalization, Other)
  Sender: FDA-Public Use
  Company Number: US-SA-2015SA043163

PATIENT
  Age: 80 Year
  Sex: Female

DRUGS (1)
  1. PLAVIX [Suspect]
     Active Substance: CLOPIDOGREL BISULFATE
     Indication: STENT PLACEMENT
     Dosage: 10 YEARS AGO
     Route: 065
     Dates: start: 2005

REACTIONS (4)
  - Urinary tract infection [Unknown]
  - Arrhythmia [Unknown]
  - Hyponatraemia [Unknown]
  - Delirium [Unknown]
